FAERS Safety Report 5765051-3 (Version None)
Quarter: 2008Q2

REPORT INFORMATION
  Report Type: 
  Country: None (occurrence: None)
  Receive Date: 20080611
  Receipt Date: 20080403
  Transmission Date: 20081010
  Serious: No
  Sender: FDA-Public Use
  Company Number: US-PFIZER INC-2008029819

PATIENT
  Age: 20 Year
  Sex: Female

DRUGS (4)
  1. GEODON [Suspect]
     Indication: BIPOLAR I DISORDER
     Dates: start: 20080227, end: 20080301
  2. ALL OTHER THERAPEUTIC PRODUCTS [Concomitant]
  3. CLONAZEPAM [Concomitant]
  4. ZOLPIDEM [Concomitant]

REACTIONS (1)
  - NO ADVERSE EVENT [None]
